FAERS Safety Report 7350045-7 (Version None)
Quarter: 2011Q1

REPORT INFORMATION
  Report Type: 
  Country: None (occurrence: None)
  Receive Date: 20110314
  Receipt Date: 20110309
  Transmission Date: 20110831
  Serious: Yes (Life-Threatening)
  Sender: FDA-Public Use
  Company Number: FR-ROCHE-764900

PATIENT
  Age: 50 Year
  Sex: Female

DRUGS (2)
  1. TAXOL [Concomitant]
  2. AVASTIN [Suspect]
     Route: 065

REACTIONS (1)
  - PNEUMOTHORAX [None]
